FAERS Safety Report 14941014 (Version 1)
Quarter: 2018Q2

REPORT INFORMATION
  Report Type: Spontaneous
  Country: US (occurrence: US)
  Receive Date: 20180525
  Receipt Date: 20180525
  Transmission Date: 20180711
  Serious: No
  Sender: FDA-Public Use
  Company Number: US-BIOGEN-2018BI00581589

PATIENT
  Age: 42 Year
  Sex: Female

DRUGS (2)
  1. TYSABRI [Suspect]
     Active Substance: NATALIZUMAB
     Indication: MULTIPLE SCLEROSIS
     Route: 065
     Dates: start: 20141030, end: 20150609
  2. TYSABRI [Suspect]
     Active Substance: NATALIZUMAB
     Dates: start: 20150923

REACTIONS (3)
  - Limb mass [Unknown]
  - Infusion site extravasation [Unknown]
  - Accidental underdose [Unknown]

NARRATIVE: CASE EVENT DATE: 20180417
